FAERS Safety Report 11782707 (Version 1)
Quarter: 2015Q4

REPORT INFORMATION
  Report Type: Spontaneous
  Country: DE (occurrence: DE)
  Receive Date: 20151127
  Receipt Date: 20151127
  Transmission Date: 20160305
  Serious: Yes (Congenital Anomaly)
  Sender: FDA-Public Use
  Company Number: GXKR2015DE005175

PATIENT

DRUGS (3)
  1. BERODUAL INHALATION SOLUTION [Concomitant]
     Dosage: 0.1 [MG/D ] / 0.04 [MG/D ]/ ON DEMAND
     Route: 064
     Dates: start: 20140927, end: 20150717
  2. LEVETIRACETAM. [Suspect]
     Active Substance: LEVETIRACETAM
     Indication: EPILEPSY
     Dosage: 500 MG, BID
     Route: 064
     Dates: start: 20140927, end: 20150717
  3. NOVOPULMON [Suspect]
     Active Substance: BUDESONIDE
     Dosage: 0.4 MG, BID
     Route: 064
     Dates: start: 20140927, end: 20150717

REACTIONS (2)
  - Congenital hydronephrosis [Not Recovered/Not Resolved]
  - Pancreatic cyst [Not Recovered/Not Resolved]

NARRATIVE: CASE EVENT DATE: 20150717
